FAERS Safety Report 5583102-6 (Version None)
Quarter: 2008Q1

REPORT INFORMATION
  Report Type: 
  Country: None (occurrence: None)
  Receive Date: 20080107
  Receipt Date: 20080104
  Transmission Date: 20080703
  Serious: Yes (Death, Other)
  Sender: FDA-Public Use
  Company Number: US-BRISTOL-MYERS SQUIBB COMPANY-13990973

PATIENT
  Age: 35 Year
  Sex: Female

DRUGS (5)
  1. ABILIFY [Suspect]
     Route: 048
     Dates: start: 20061201, end: 20070101
  2. LAMICTAL [Suspect]
     Indication: BIPOLAR DISORDER
     Dosage: FORM TABLET
     Route: 048
  3. WELLBUTRIN XL [Suspect]
     Dosage: TABLET EXTENDED RELEASE
  4. ZIPRASIDONE HCL [Suspect]
     Route: 048
  5. QUETIAPINE FUMARATE [Suspect]
     Dosage: TABLET
     Route: 048

REACTIONS (2)
  - CONVULSION [None]
  - DEATH [None]
